FAERS Safety Report 17575211 (Version 19)
Quarter: 2021Q3

REPORT INFORMATION
  Report Type: Spontaneous
  Country: GB (occurrence: GB)
  Receive Date: 20200324
  Receipt Date: 20210923
  Transmission Date: 20211014
  Serious: Yes (Life-Threatening, Hospitalization, Disabling, Other)
  Sender: FDA-Public Use
  Company Number: GB-AUROBINDO-AUR-APL-2020-014043

PATIENT
  Age: 27 Year
  Sex: Female
  Weight: 63.5 kg

DRUGS (61)
  1. CODEINE PHOSPHATE [Suspect]
     Active Substance: CODEINE PHOSPHATE
     Dosage: UNK
     Route: 048
     Dates: start: 20110224, end: 20110410
  2. MIRTAZAPINE FILM?COATED TABLET [Interacting]
     Active Substance: MIRTAZAPINE
     Indication: DEPRESSION
     Dosage: 30 MILLIGRAM, ONCE A DAY
     Route: 048
     Dates: start: 20100923, end: 20101108
  3. PAROXETINE FILM COATED TABLETS [Interacting]
     Active Substance: PAROXETINE
     Dosage: 60 MILLIGRAM, ONCE A DAY
     Route: 048
     Dates: start: 19990801, end: 201105
  4. DIAZEPAM. [Suspect]
     Active Substance: DIAZEPAM
     Indication: MUSCLE SPASMS
     Dosage: 20 MILLIGRAM (20 MG, QID ), ONCE A DAY
     Route: 065
     Dates: start: 20110725
  5. DIAZEPAM. [Suspect]
     Active Substance: DIAZEPAM
     Dosage: 8 MILLIGRAM (8 MG, QD (5 MG QDS AND NOW ON 2?2?4 MG) )
     Route: 048
     Dates: start: 20110725
  6. DIAZEPAM. [Suspect]
     Active Substance: DIAZEPAM
     Dosage: 5 MILLIGRAM (5 MG, QID ), ONCE A DAY
     Route: 048
     Dates: start: 20110725
  7. LORAZEPAM. [Suspect]
     Active Substance: LORAZEPAM
     Dosage: 4 MILLIGRAM, (4 MG, QD (1 MG QID) ) ONCE A DAY
     Route: 048
     Dates: start: 20110202, end: 20110410
  8. SEROXAT [Suspect]
     Active Substance: PAROXETINE HYDROCHLORIDE
     Dosage: 20 MG, TID
     Route: 048
     Dates: start: 19990801, end: 201105
  9. SEROXAT [Suspect]
     Active Substance: PAROXETINE HYDROCHLORIDE
     Dosage: UNK
     Route: 048
     Dates: start: 200812, end: 20101210
  10. DOMPERIDONE TABLETS [Interacting]
     Active Substance: DOMPERIDONE
     Indication: PRODUCT USED FOR UNKNOWN INDICATION
     Dosage: UNK
     Route: 048
  11. PAROXETINE FILM COATED TABLETS [Suspect]
     Active Substance: PAROXETINE
     Indication: DEPRESSION
     Dosage: 20 MILLIGRAM, 3 TIMES A DAY (60 MG ONCE A DAY)
     Route: 048
     Dates: start: 1997, end: 201105
  12. PAROXETINE FILM COATED TABLETS [Interacting]
     Active Substance: PAROXETINE
     Indication: POST-TRAUMATIC STRESS DISORDER
     Dosage: 40 MILLIGRAM, ONCE A DAY
     Route: 048
     Dates: start: 19990801, end: 20110706
  13. PAROXETINE FILM COATED TABLETS [Interacting]
     Active Substance: PAROXETINE
     Dosage: 20 MILLIGRAM
     Route: 048
     Dates: start: 201105, end: 20110706
  14. LORAZEPAM. [Suspect]
     Active Substance: LORAZEPAM
     Dosage: 1 MILLIGRAM
     Route: 048
     Dates: start: 20110627
  15. LORAZEPAM. [Suspect]
     Active Substance: LORAZEPAM
     Dosage: 1 MILLIGRAM
     Route: 048
     Dates: start: 20110725
  16. LORAZEPAM. [Suspect]
     Active Substance: LORAZEPAM
     Dosage: 1 MILLIGRAM, ONCE A DAY
     Route: 048
     Dates: start: 20110523, end: 20110627
  17. PROCYCLIDINE [Suspect]
     Active Substance: PROCYCLIDINE
     Indication: EXTRAPYRAMIDAL DISORDER
     Dosage: 5 MILLIGRAM, ONCE A DAY
     Route: 048
     Dates: start: 1995, end: 1996
  18. SEROXAT [Suspect]
     Active Substance: PAROXETINE HYDROCHLORIDE
     Dosage: UNK
     Route: 048
     Dates: start: 1999
  19. CODEINE PHOSPHATE [Suspect]
     Active Substance: CODEINE PHOSPHATE
     Indication: ANALGESIC THERAPY
     Dosage: UNK
     Route: 048
     Dates: start: 2002, end: 2002
  20. CODEINE PHOSPHATE [Suspect]
     Active Substance: CODEINE PHOSPHATE
     Indication: SEROTONIN SYNDROME
     Dosage: 4 CYCLICAL, ONCE A DAY
     Route: 065
     Dates: start: 20081201, end: 20101210
  21. MIRTAZAPINE FILM?COATED TABLET [Interacting]
     Active Substance: MIRTAZAPINE
     Dosage: 30 MILLIGRAM, ONCE A DAY
     Route: 065
     Dates: start: 20110224, end: 20110506
  22. QUETIAPINE FILM?COATED TABLET [Interacting]
     Active Substance: QUETIAPINE
     Dosage: 300 MILLIGRAM
     Route: 048
     Dates: start: 20110224, end: 20110506
  23. TRAMADOL. [Suspect]
     Active Substance: TRAMADOL
     Indication: NECK PAIN
     Dosage: 5 MILLIGRAM, ONCE A DAY
     Route: 044
     Dates: start: 1995, end: 1996
  24. LORAZEPAM. [Suspect]
     Active Substance: LORAZEPAM
     Dosage: 4 MILLIGRAM, FOUR TIMES/DAY
     Route: 048
     Dates: start: 20110523, end: 20110627
  25. OMEPRAZOLE. [Suspect]
     Active Substance: OMEPRAZOLE
     Indication: DYSPEPSIA
     Dosage: 20 MILLIGRAM, ONCE A DAY
     Route: 065
     Dates: start: 20110525
  26. PROCYCLIDINE [Suspect]
     Active Substance: PROCYCLIDINE
     Dosage: 5 MG, TID
     Route: 048
     Dates: start: 20110503, end: 20110510
  27. SEROXAT [Suspect]
     Active Substance: PAROXETINE HYDROCHLORIDE
     Dosage: 40 MILLIGRAM, ONCE A DAY
     Route: 048
     Dates: start: 201105, end: 20110706
  28. SEROXAT [Suspect]
     Active Substance: PAROXETINE HYDROCHLORIDE
     Dosage: 40 MILLIGRAM (40 MG, QD ), ONCE A DAY
     Route: 048
     Dates: start: 201105, end: 20110706
  29. PAROXETINE FILM COATED TABLETS [Interacting]
     Active Substance: PAROXETINE
     Dosage: 40 MILLIGRAM, ONCE A DAY
     Route: 048
     Dates: start: 201105, end: 20110706
  30. PAROXETINE FILM COATED TABLETS [Interacting]
     Active Substance: PAROXETINE
     Dosage: UNK
     Route: 048
     Dates: start: 201012
  31. QUETIAPINE FILM?COATED TABLET [Interacting]
     Active Substance: QUETIAPINE
     Indication: PSYCHOTIC DISORDER
     Dosage: UNK
     Route: 048
     Dates: start: 19990801, end: 20110706
  32. TRAMADOL. [Suspect]
     Active Substance: TRAMADOL
     Indication: ANALGESIC THERAPY
     Dosage: 50?100MG
     Route: 048
     Dates: start: 20080722
  33. TRAMADOL. [Suspect]
     Active Substance: TRAMADOL
     Indication: BACK PAIN
     Dosage: DISCONTINUED AFTER 4 OR 5 DAYS
     Route: 048
     Dates: start: 20081201, end: 20101210
  34. TRAMADOL. [Suspect]
     Active Substance: TRAMADOL
     Dosage: UNK
     Route: 065
     Dates: start: 2008, end: 2009
  35. AMITRIPTYLINE [Suspect]
     Active Substance: AMITRIPTYLINE
     Indication: NEURALGIA
     Dosage: 20 MILLIGRAM, ONCE A DAY
     Route: 065
     Dates: start: 20110525
  36. CLONAZEPAM. [Suspect]
     Active Substance: CLONAZEPAM
     Indication: SEDATION
     Dosage: UNK
     Route: 048
     Dates: start: 20110224, end: 20110410
  37. PROCYCLIDINE [Suspect]
     Active Substance: PROCYCLIDINE
     Indication: EXTRAPYRAMIDAL DISORDER
     Dosage: 20 MILLIGRAM
     Route: 048
     Dates: start: 20110324, end: 20110506
  38. PROCYCLIDINE [Suspect]
     Active Substance: PROCYCLIDINE
     Dosage: 15 MILLIGRAM, ONCE A DAY
     Route: 048
     Dates: start: 20110503, end: 20110510
  39. SEROXAT [Suspect]
     Active Substance: PAROXETINE HYDROCHLORIDE
     Indication: DEPRESSION
     Dosage: 20 MILLIGRAM, TID
     Route: 048
     Dates: start: 1997
  40. SEROXAT [Suspect]
     Active Substance: PAROXETINE HYDROCHLORIDE
     Dosage: UNK
     Route: 048
     Dates: start: 201012
  41. DOMPERIDONE TABLETS [Interacting]
     Active Substance: DOMPERIDONE
     Dosage: UNK
     Route: 048
     Dates: start: 20100923, end: 20101108
  42. PHOSPHORUS [Suspect]
     Active Substance: PHOSPHORUS
     Indication: PRODUCT USED FOR UNKNOWN INDICATION
     Dosage: UNK
     Route: 065
  43. PROCYCLIDINE [Suspect]
     Active Substance: PROCYCLIDINE
     Indication: OCULOGYRIC CRISIS
     Dosage: UNK
     Route: 065
     Dates: start: 20110415
  44. PROCYCLIDINE [Suspect]
     Active Substance: PROCYCLIDINE
     Dosage: 20 MILLIGRAM, ONCE A DAY
     Route: 065
     Dates: start: 20110415
  45. MIRTAZAPINE FILM?COATED TABLET [Interacting]
     Active Substance: MIRTAZAPINE
     Indication: PSYCHOTIC DISORDER
     Dosage: 30 MILLIGRAM, ONCE A DAY
     Route: 048
     Dates: start: 20101007, end: 20101012
  46. AMITRIPTYLINE [Suspect]
     Active Substance: AMITRIPTYLINE
     Indication: MUSCLE SPASMS
     Dosage: 25 MILLIGRAM, ONCE A DAY
     Route: 065
     Dates: start: 20110810
  47. AMITRIPTYLINE [Suspect]
     Active Substance: AMITRIPTYLINE
     Indication: NEURALGIA
  48. AMITRIPTYLINE [Suspect]
     Active Substance: AMITRIPTYLINE
     Indication: SEROTONIN SYNDROME
  49. CODEINE PHOSPHATE [Suspect]
     Active Substance: CODEINE PHOSPHATE
     Indication: ANALGESIC THERAPY
     Dosage: UNK
     Route: 048
     Dates: start: 2008, end: 2008
  50. PAROXETINE FILM COATED TABLETS [Interacting]
     Active Substance: PAROXETINE
     Dosage: UNK
     Route: 048
     Dates: start: 200812, end: 20101210
  51. TRAMADOL. [Suspect]
     Active Substance: TRAMADOL
     Indication: OCULOGYRIC CRISIS
     Dosage: 5 MILLIGRAM
     Route: 044
     Dates: start: 1995, end: 1996
  52. TRAMADOL. [Suspect]
     Active Substance: TRAMADOL
     Dosage: 8 MILLIGRAM,(8 MG, QD ) ONCE A DAY
     Route: 065
  53. DIAZEPAM. [Suspect]
     Active Substance: DIAZEPAM
     Indication: MUSCLE SPASMS
     Dosage: 5 MG QDS AND NOW ON 2?2?4 MG
     Route: 048
     Dates: start: 20110725
  54. DIAZEPAM. [Suspect]
     Active Substance: DIAZEPAM
     Indication: SEROTONIN SYNDROME
     Dosage: 8 MILLIGRAM, ONCE A DAY
     Route: 048
  55. LORAZEPAM. [Suspect]
     Active Substance: LORAZEPAM
     Dosage: 4 MILLIGRAM
     Route: 048
     Dates: start: 20110224, end: 20110410
  56. CODEINE PHOSPHATE [Suspect]
     Active Substance: CODEINE PHOSPHATE
     Dosage: 15?30 MG
     Route: 048
     Dates: start: 20110615, end: 20110723
  57. MIRTAZAPINE FILM?COATED TABLET [Interacting]
     Active Substance: MIRTAZAPINE
     Dosage: 15 MILLIGRAM, ONCE A DAY
     Route: 065
     Dates: start: 20110224, end: 20110506
  58. MIRTAZAPINE FILM?COATED TABLET [Interacting]
     Active Substance: MIRTAZAPINE
     Dosage: 15 MILLIGRAM, ONCE A DAY
     Route: 048
     Dates: start: 20101007, end: 20101012
  59. PAROXETINE FILM COATED TABLETS [Interacting]
     Active Substance: PAROXETINE
     Dosage: 60 MILLIGRAM
     Route: 048
     Dates: start: 1997, end: 201105
  60. LORAZEPAM. [Suspect]
     Active Substance: LORAZEPAM
     Indication: SEDATION
     Dosage: 1 MILLIGRAM, ONCE A DAY
     Route: 048
     Dates: start: 20110224, end: 20110410
  61. SEROXAT [Suspect]
     Active Substance: PAROXETINE HYDROCHLORIDE
     Dosage: 40 MG, QD
     Route: 048
     Dates: start: 201105, end: 20110706

REACTIONS (88)
  - Psychotic disorder [Recovered/Resolved]
  - Neuroleptic malignant syndrome [Unknown]
  - Contusion [Not Recovered/Not Resolved]
  - Pyrexia [Unknown]
  - Muscle spasms [Unknown]
  - Restless legs syndrome [Not Recovered/Not Resolved]
  - Depersonalisation/derealisation disorder [Not Recovered/Not Resolved]
  - Drug withdrawal syndrome [Unknown]
  - Arthralgia [Unknown]
  - Depression [Unknown]
  - Restlessness [Unknown]
  - Disorientation [Not Recovered/Not Resolved]
  - Cogwheel rigidity [Unknown]
  - Emotional disorder [Unknown]
  - Balance disorder [Unknown]
  - Hypoaesthesia oral [Unknown]
  - Seizure [Unknown]
  - Derealisation [Not Recovered/Not Resolved]
  - Sensory loss [Unknown]
  - Swollen tongue [Unknown]
  - Menstrual disorder [Unknown]
  - Paralysis [Unknown]
  - Incontinence [Not Recovered/Not Resolved]
  - Swelling face [Unknown]
  - Hypoaesthesia [Not Recovered/Not Resolved]
  - Serotonin syndrome [Not Recovered/Not Resolved]
  - Dizziness [Unknown]
  - Sleep disorder [Unknown]
  - Aphasia [Not Recovered/Not Resolved]
  - Paraesthesia [Unknown]
  - Disturbance in attention [Unknown]
  - Toxicity to various agents [Unknown]
  - Premature labour [Unknown]
  - Drug ineffective [Unknown]
  - Mood swings [Unknown]
  - Illness [Unknown]
  - Headache [Unknown]
  - Fatigue [Not Recovered/Not Resolved]
  - Muscle rigidity [Unknown]
  - Blood sodium decreased [Unknown]
  - Gait disturbance [Unknown]
  - Pruritus [Unknown]
  - Exposure during pregnancy [Unknown]
  - Off label use [Unknown]
  - Agitation [Unknown]
  - Vomiting [Unknown]
  - Anxiety [Unknown]
  - Parosmia [Unknown]
  - Cyanosis [Unknown]
  - Asthenia [Unknown]
  - Dyspnoea [Unknown]
  - Decreased appetite [Unknown]
  - Feeling of despair [Unknown]
  - Diarrhoea [Unknown]
  - Visual impairment [Unknown]
  - Delirium [Unknown]
  - Nightmare [Unknown]
  - Dyskinesia [Unknown]
  - H1N1 influenza [Unknown]
  - Suicidal ideation [Not Recovered/Not Resolved]
  - Muscle disorder [Unknown]
  - Somnolence [Not Recovered/Not Resolved]
  - Therapeutic product ineffective [Unknown]
  - Limb injury [Unknown]
  - Mania [Unknown]
  - Feeling of body temperature change [Unknown]
  - Urinary retention [Unknown]
  - Vision blurred [Unknown]
  - Hyperhidrosis [Unknown]
  - Dissociation [Not Recovered/Not Resolved]
  - Hallucinations, mixed [Unknown]
  - Tinnitus [Unknown]
  - Dystonia [Unknown]
  - Musculoskeletal stiffness [Unknown]
  - Eye pain [Unknown]
  - Heart rate increased [Unknown]
  - Mydriasis [Unknown]
  - Drug interaction [Unknown]
  - Tachycardia [Unknown]
  - Tremor [Not Recovered/Not Resolved]
  - Drooling [Unknown]
  - Pallor [Unknown]
  - Speech disorder [Not Recovered/Not Resolved]
  - Skin discolouration [Not Recovered/Not Resolved]
  - Feeling jittery [Unknown]
  - Gastric pH decreased [Unknown]
  - Schizophrenia [Unknown]
  - Confusional state [Not Recovered/Not Resolved]

NARRATIVE: CASE EVENT DATE: 2003
